FAERS Safety Report 8769850 (Version 1)
Quarter: 2012Q4

REPORT INFORMATION
  Report Type: 
  Country: US (occurrence: US)
  Receive Date: 20120906
  Receipt Date: 20120906
  Transmission Date: 20130627
  Serious: Yes (Other)
  Sender: FDA-Public Use
  Company Number: GB-ASTRAZENECA-2011SE21940

PATIENT
  Age: 64 Year
  Sex: Female

DRUGS (3)
  1. ATACAND [Suspect]
     Route: 048
  2. NEXIUM [Suspect]
     Route: 048
  3. ARIMIDEX [Suspect]
     Route: 048

REACTIONS (3)
  - Breast cancer female [Unknown]
  - Osteoarthritis [Unknown]
  - Arthritis [Unknown]
